FAERS Safety Report 19655671 (Version 1)
Quarter: 2021Q3

REPORT INFORMATION
  Report Type: Spontaneous
  Country: FR (occurrence: FR)
  Receive Date: 20210804
  Receipt Date: 20210804
  Transmission Date: 20211014
  Serious: Yes (Hospitalization)
  Sender: FDA-Public Use
  Company Number: FR-PFIZER INC-202100947871

PATIENT
  Age: 73 Year
  Sex: Male
  Weight: 60 kg

DRUGS (4)
  1. LEVOTHYROX [Concomitant]
     Active Substance: LEVOTHYROXINE
  2. TRIUMEQ [Concomitant]
     Active Substance: ABACAVIR SULFATE\DOLUTEGRAVIR SODIUM\LAMIVUDINE
  3. RAPAMUNE [Suspect]
     Active Substance: SIROLIMUS
     Indication: INCLUSION BODY MYOSITIS
     Dosage: 2 MG, 1X/DAY
     Route: 048
     Dates: start: 20210308, end: 20210424
  4. LIPANTHYL [Concomitant]
     Active Substance: FENOFIBRATE

REACTIONS (5)
  - Interstitial lung disease [Unknown]
  - Dyspnoea [Recovering/Resolving]
  - Rhinorrhoea [Recovered/Resolved]
  - Lung disorder [Recovering/Resolving]
  - Off label use [Unknown]

NARRATIVE: CASE EVENT DATE: 20210308
